FAERS Safety Report 8524526-4 (Version None)
Quarter: 2012Q3

REPORT INFORMATION
  Report Type: 
  Country: None (occurrence: None)
  Receive Date: 20120720
  Receipt Date: 20120717
  Transmission Date: 20120928
  Serious: Yes (Life-Threatening, Hospitalization, Other)
  Sender: FDA-Public Use
  Company Number: US-ACTELION-A-NJ2011-55203

PATIENT

DRUGS (18)
  1. TRACLEER [Suspect]
     Indication: PULMONARY ARTERIAL HYPERTENSION
     Dosage: 125 MG, BID
     Route: 048
     Dates: start: 20101209, end: 20120511
  2. BUMEX [Concomitant]
  3. LASIX [Concomitant]
  4. ENBREL [Concomitant]
  5. CELLCEPT [Concomitant]
  6. TRACLEER [Suspect]
     Dosage: 62.5 MG, BID
     Route: 048
     Dates: start: 20101110, end: 20101208
  7. MG 5 [Concomitant]
  8. PROTONIX [Concomitant]
  9. PLAQUENIL [Concomitant]
  10. MORPHINE SULFATE [Concomitant]
  11. AMOXICILLIN [Concomitant]
  12. CALCIUM CARBONATE [Concomitant]
  13. CYMBALTA [Concomitant]
  14. OXYCODONE HCL [Concomitant]
  15. DUONEB [Concomitant]
  16. ZOTRAN [Concomitant]
  17. EPOPROSTENOL SODIUM [Suspect]
     Indication: PULMONARY ARTERIAL HYPERTENSION
     Dosage: 22 NG/KG, PER MIN
     Route: 041
     Dates: start: 20110511
  18. FENTANYL [Concomitant]

REACTIONS (13)
  - DISEASE PROGRESSION [None]
  - GENERAL PHYSICAL HEALTH DETERIORATION [None]
  - FEELING ABNORMAL [None]
  - CHEST PAIN [None]
  - ASCITES [None]
  - HEART AND LUNG TRANSPLANT [None]
  - DECREASED APPETITE [None]
  - RIGHT VENTRICULAR FAILURE [None]
  - WEIGHT DECREASED [None]
  - DYSPNOEA [None]
  - PULMONARY ARTERIAL HYPERTENSION [None]
  - SYNCOPE [None]
  - FLUID RETENTION [None]
